FAERS Safety Report 4412906-8 (Version None)
Quarter: 2004Q3

REPORT INFORMATION
  Report Type: 
  Country: None (occurrence: None)
  Receive Date: 20040730
  Receipt Date: 20040730
  Transmission Date: 20050211
  Serious: Yes (Other)
  Sender: FDA-Public Use
  Company Number: None

PATIENT
  Sex: Female
  Weight: 92.1 kg

DRUGS (14)
  1. VELCADE [Suspect]
     Indication: MULTIPLE MYELOMA
     Dosage: 2.63 MG IVP CYCLE 1 AND 2 COMPLETED. EACH CYCLE CONSISTS OF 4 DOSES IN A 21 DAY PERIOD. DAYS 1,4,8,
     Route: 042
  2. TOPROL-XL [Concomitant]
  3. ACYCLOVIR [Concomitant]
  4. DIOVAN [Concomitant]
  5. LASIX [Concomitant]
  6. FLECAINIDE ACETATE [Concomitant]
  7. PROTONIX [Concomitant]
  8. ALLOPURINOL [Concomitant]
  9. K-DUR 10 [Concomitant]
  10. SENNA [Concomitant]
  11. GLYBURIDE [Concomitant]
  12. LIPITOR [Concomitant]
  13. COUMADIN [Concomitant]
  14. DURAGESIC [Concomitant]

REACTIONS (5)
  - CARDIAC FAILURE CONGESTIVE [None]
  - DYSPNOEA [None]
  - FLUID OVERLOAD [None]
  - HYPOTENSION [None]
  - OEDEMA PERIPHERAL [None]
